FAERS Safety Report 20217754 (Version 1)
Quarter: 2021Q4

REPORT INFORMATION
  Report Type: Spontaneous
  Country: US (occurrence: US)
  Receive Date: 20211222
  Receipt Date: 20211222
  Transmission Date: 20220303
  Serious: No
  Sender: FDA-Public Use
  Company Number: US-BioHaven Pharmaceuticals-2021BHV000310

PATIENT
  Age: 50 Year
  Sex: Female

DRUGS (6)
  1. NURTEC ODT [Suspect]
     Active Substance: RIMEGEPANT SULFATE
     Indication: Product used for unknown indication
  2. CELEBREX [Concomitant]
     Active Substance: CELECOXIB
     Indication: Product used for unknown indication
  3. ZOLOFT [Concomitant]
     Active Substance: SERTRALINE HYDROCHLORIDE
  4. SINGULAIR [Concomitant]
     Active Substance: MONTELUKAST SODIUM
  5. ACIPHEX [Concomitant]
     Active Substance: RABEPRAZOLE SODIUM
  6. TOPAMAX [Concomitant]
     Active Substance: TOPIRAMATE

REACTIONS (3)
  - Aura [Unknown]
  - Nausea [Unknown]
  - Vertigo [Unknown]
